FAERS Safety Report 10758769 (Version 1)
Quarter: 2015Q1

REPORT INFORMATION
  Report Type: Spontaneous
  Country: US (occurrence: None)
  Receive Date: 20150123
  Receipt Date: 20150123
  Transmission Date: 20150721
  Serious: No
  Sender: FDA-Public Use
  Company Number: TPA2013A02009

PATIENT
  Age: 56 Year
  Sex: Female

DRUGS (30)
  1. OMONTYS [Suspect]
     Active Substance: PEGINESATIDE
     Indication: NEPHROGENIC ANAEMIA
     Dosage: 8 MG, 1 IN 1 M, INTRAVENOUS
     Route: 042
     Dates: start: 20130208, end: 20130208
  2. NITROGLYCERIN (GLYCERYL TRINITRATE) [Concomitant]
     Active Substance: NITROGLYCERIN
  3. NOVOLIN R (INSULIN HUMAN) [Concomitant]
  4. RENAL SOFTGEL (ASCORBIC ACID, PYRIDOXINE HYDROCHLORIDE, BIOTIN, FOLIC ACID, THIAMINE HYDROCHLORIDE, CYANOCOBALAMIN, RIBOFLAVIN, NICOTINAMIDE, CALCIUM PANTOTHENATE) [Concomitant]
  5. CALCITRIOL. [Concomitant]
     Active Substance: CALCITRIOL
  6. FLONASE [Concomitant]
     Active Substance: FLUTICASONE PROPIONATE
  7. CARAFATE (SUCRALFATE) [Concomitant]
  8. LACTOBACILLUS (LACTOBACILLUS ACIDOPHILUS) [Concomitant]
  9. PRAVASTATIN [Concomitant]
     Active Substance: PRAVASTATIN\PRAVASTATIN SODIUM
  10. OMEPRAZOLE. [Concomitant]
     Active Substance: OMEPRAZOLE
  11. PHENERGAN [Concomitant]
     Active Substance: PROMETHAZINE HYDROCHLORIDE
  12. EMLA (LIDOCAINE, PRILOCAINE) [Concomitant]
  13. ONDASETRON (ONDANSETRON) [Concomitant]
  14. CATAPRES (CLONIDINE) [Concomitant]
  15. GLUCAGON. [Concomitant]
     Active Substance: GLUCAGON
  16. INSULIN R (INSULIN HUMAN) [Concomitant]
  17. SEROQUEL [Concomitant]
     Active Substance: QUETIAPINE FUMARATE
  18. VICODIN (PARACETAMOL, HYDROCODONE BITARTRATE) [Concomitant]
  19. COZAAR [Concomitant]
     Active Substance: LOSARTAN POTASSIUM
  20. BENADRYL [Concomitant]
     Active Substance: DIPHENHYDRAMINE HYDROCHLORIDE
  21. PROMOD (PROTEIN SUPPLEMENTS) [Concomitant]
  22. RENVELA [Concomitant]
     Active Substance: SEVELAMER CARBONATE
  23. LOMOTIL (ATROPINE SULFATE, DIPHENOXYLATE HYDROCHLORIDE) [Concomitant]
  24. ERGOCALCIFEROL. [Concomitant]
     Active Substance: ERGOCALCIFEROL
  25. DEXTROSE 50% (GLUCOSE) [Concomitant]
  26. ADALAT (NIFEDIPINE) [Concomitant]
  27. CELEXA [Concomitant]
     Active Substance: CITALOPRAM HYDROBROMIDE
  28. LANTUS [Concomitant]
     Active Substance: INSULIN GLARGINE
  29. LOPRESSOR [Concomitant]
     Active Substance: METOPROLOL TARTRATE
  30. TYLENOL [Concomitant]
     Active Substance: ACETAMINOPHEN

REACTIONS (3)
  - Rash pruritic [None]
  - Rash [None]
  - Hypersensitivity [None]

NARRATIVE: CASE EVENT DATE: 20130208
